FAERS Safety Report 9491384 (Version 3)
Quarter: 2013Q3

REPORT INFORMATION
  Report Type: Spontaneous
  Country: JP (occurrence: JP)
  Receive Date: 20130830
  Receipt Date: 20130909
  Transmission Date: 20140515
  Serious: Yes (Other)
  Sender: FDA-Public Use
  Company Number: JP-PFIZER INC-2013249829

PATIENT
  Age: 53 Year
  Sex: Male

DRUGS (13)
  1. ADRIACIN [Suspect]
     Indication: HODGKIN^S DISEASE
     Dosage: 4 CYCLES
     Route: 042
     Dates: start: 200809
  2. ADRIACIN [Suspect]
     Indication: ANGIOIMMUNOBLASTIC T-CELL LYMPHOMA
     Dosage: 2 CYCLES
     Dates: start: 201109
  3. ETOPOSIDE [Suspect]
     Indication: ANGIOIMMUNOBLASTIC T-CELL LYMPHOMA
     Dosage: 1 CYCLE AS PART OF ESHAP
     Dates: start: 201105
  4. ETOPOSIDE [Suspect]
     Dosage: FOR 2 MONTHS
     Route: 048
  5. METHYLPREDNISOLONE [Suspect]
     Indication: ANGIOIMMUNOBLASTIC T-CELL LYMPHOMA
     Dosage: 1 CYCLE
     Dates: start: 201105
  6. CYTARABINE [Suspect]
     Indication: ANGIOIMMUNOBLASTIC T-CELL LYMPHOMA
     Dosage: 1 CYCLE
     Dates: start: 201105
  7. CISPLATIN [Suspect]
     Indication: ANGIOIMMUNOBLASTIC T-CELL LYMPHOMA
     Dosage: 1 CYCLE
     Dates: start: 201105
  8. BLEOMYCIN HYDROCHLORIDE [Suspect]
     Indication: HODGKIN^S DISEASE
     Dosage: 4 CYCLES
     Route: 042
     Dates: start: 200809
  9. VINBLASTINE [Suspect]
     Indication: HODGKIN^S DISEASE
     Dosage: 4 CYCLES
     Route: 042
     Dates: start: 200809
  10. DACARBAZINE [Suspect]
     Indication: HODGKIN^S DISEASE
     Dosage: 4 CYCLES
     Route: 042
     Dates: start: 200809
  11. CYCLOPHOSPHAMIDE [Suspect]
     Indication: ANGIOIMMUNOBLASTIC T-CELL LYMPHOMA
     Dosage: 2 CYCLES
     Dates: start: 201109
  12. VINCRISTINE [Suspect]
     Indication: ANGIOIMMUNOBLASTIC T-CELL LYMPHOMA
     Dosage: 2 CYCLES
     Dates: start: 201109
  13. PREDNISONE [Suspect]
     Indication: ANGIOIMMUNOBLASTIC T-CELL LYMPHOMA
     Dosage: 2 CYCLES
     Dates: start: 201109

REACTIONS (2)
  - Second primary malignancy [Recovered/Resolved]
  - Acute promyelocytic leukaemia [Recovered/Resolved]
